FAERS Safety Report 4313253-5 (Version None)
Quarter: 2004Q1

REPORT INFORMATION
  Report Type: 
  Country: None (occurrence: None)
  Receive Date: 20040304
  Receipt Date: 20040220
  Transmission Date: 20041129
  Serious: Yes (Other)
  Sender: FDA-Public Use
  Company Number: ZONI001329

PATIENT
  Age: 50 Year
  Sex: Female

DRUGS (2)
  1. ZONEGRAN [Suspect]
     Indication: BIPOLAR DISORDER
     Dosage: 200 MG DAILY ORAL
     Route: 048
     Dates: start: 20040201
  2. ABILIFY [Concomitant]

REACTIONS (2)
  - ALANINE AMINOTRANSFERASE INCREASED [None]
  - ASPARTATE AMINOTRANSFERASE INCREASED [None]
